FAERS Safety Report 5706521-3 (Version None)
Quarter: 2008Q2

REPORT INFORMATION
  Report Type: 
  Country: None (occurrence: None)
  Receive Date: 20080414
  Receipt Date: 20080403
  Transmission Date: 20081010
  Serious: Yes (Other)
  Sender: FDA-Public Use
  Company Number: 2008S1002765

PATIENT
  Age: 40 Year
  Sex: Male

DRUGS (2)
  1. FLEET ENEMA (SODIUM PHOSPHATE) [Suspect]
     Indication: LAXATIVE SUPPORTIVE CARE
     Dosage: 133 ML;XQ;RTL
     Route: 054
     Dates: start: 20080403, end: 20080403
  2. MIRALAX [Concomitant]

REACTIONS (2)
  - ABDOMINAL PAIN [None]
  - DRUG INEFFECTIVE [None]
